FAERS Safety Report 8037504-9 (Version None)
Quarter: 2012Q1

REPORT INFORMATION
  Report Type: 
  Country: None (occurrence: None)
  Receive Date: 20120111
  Receipt Date: 20120106
  Transmission Date: 20120608
  Serious: Yes (Hospitalization)
  Sender: FDA-Public Use
  Company Number: GB-PFIZER INC-2012005669

PATIENT
  Age: 67 Year
  Sex: Male

DRUGS (3)
  1. SUTENT [Suspect]
     Indication: TRANSITIONAL CELL CARCINOMA
     Dosage: 12.5 MG, UNK
     Dates: start: 20110926
  2. GEMCITABINE [Concomitant]
     Dosage: UNK
  3. CISPLATIN [Concomitant]
     Dosage: UNK

REACTIONS (1)
  - NEUTROPENIC SEPSIS [None]
